FAERS Safety Report 15654092 (Version 1)
Quarter: 2018Q4

REPORT INFORMATION
  Report Type: Spontaneous
  Country: US (occurrence: US)
  Receive Date: 20181125
  Receipt Date: 20181125
  Transmission Date: 20190205
  Serious: Yes (Other)
  Sender: FDA-Public Use
  Company Number: None

PATIENT
  Age: 50 Year
  Sex: Male
  Weight: 48 kg

DRUGS (8)
  1. ZOLEDRONIC ACID 5MG IV [Concomitant]
  2. FEXOFENADINE 180MG [Concomitant]
     Active Substance: FEXOFENADINE HYDROCHLORIDE
  3. MIRALAX 17GM [Concomitant]
  4. ROSUVASTATIN 10MG [Concomitant]
     Active Substance: ROSUVASTATIN
  5. LEVOTHYROXINE 112 MCG [Concomitant]
     Active Substance: LEVOTHYROXINE
  6. CEPHALEXIN. [Suspect]
     Active Substance: CEPHALEXIN
     Indication: FOLLICULITIS
     Route: 048
     Dates: start: 20180907, end: 20180909
  7. NITROGLYCERIN OINT 0.5 INCH [Concomitant]
  8. PLECANATIDE 3MG [Concomitant]

REACTIONS (2)
  - Folliculitis [None]
  - Rash pustular [None]

NARRATIVE: CASE EVENT DATE: 20180908
